FAERS Safety Report 16097196 (Version 10)
Quarter: 2023Q2

REPORT INFORMATION
  Report Type: Spontaneous
  Country: HU (occurrence: HU)
  Receive Date: 20190320
  Receipt Date: 20230525
  Transmission Date: 20230722
  Serious: Yes (Hospitalization, Other)
  Sender: FDA-Public Use
  Company Number: HU-002147023-PHHY2018HU092299

PATIENT
  Age: 75 Year
  Sex: Female

DRUGS (3)
  1. TERBINAFINE [Interacting]
     Active Substance: TERBINAFINE
     Indication: Arthropod sting
     Dosage: UNK, FEW DAYS THERAPY
     Route: 065
  2. AMOXICILLIN\CLAVULANIC ACID [Interacting]
     Active Substance: AMOXICILLIN\CLAVULANIC ACID
     Indication: Arthropod sting
     Dosage: UNK, FEW DAYS THERAPY
     Route: 065
  3. PROPAFENONE [Interacting]
     Active Substance: PROPAFENONE
     Indication: Product used for unknown indication
     Dosage: CHRONIC THERAPY
     Route: 065

REACTIONS (15)
  - Hyperkalaemia [Unknown]
  - Altered state of consciousness [Recovered/Resolved]
  - Toxicity to various agents [Recovered/Resolved]
  - Drug interaction [Unknown]
  - Acute kidney injury [Recovered/Resolved]
  - Acute hepatic failure [Recovered/Resolved]
  - Ventricular tachycardia [Recovered/Resolved]
  - Sinus bradycardia [Recovered/Resolved]
  - Arrhythmia supraventricular [Recovered/Resolved]
  - Conduction disorder [Recovered/Resolved]
  - Depressed level of consciousness [Recovered/Resolved]
  - Overdose [Recovered/Resolved]
  - Drug abuse [Unknown]
  - Medication error [Unknown]
  - Intentional product misuse [Unknown]
